FAERS Safety Report 9247574 (Version 1)
Quarter: 2013Q2

REPORT INFORMATION
  Report Type: Spontaneous
  Country: DZ (occurrence: DZ)
  Receive Date: 20130423
  Receipt Date: 20130423
  Transmission Date: 20140414
  Serious: Yes (Death)
  Sender: FDA-Public Use
  Company Number: PHHY2013DZ039297

PATIENT
  Age: 3 Year
  Sex: Female

DRUGS (3)
  1. DEFERASIROX [Suspect]
     Indication: THALASSAEMIA BETA
     Dosage: 1 DF, 20/30 MG/KG/DAY
     Route: 048
     Dates: start: 20110524
  2. ERYTHROMYCIN [Concomitant]
  3. FOLIC ACID [Concomitant]
     Dosage: UNK UKN, UNK
     Dates: start: 20090331

REACTIONS (1)
  - Death [Fatal]
